FAERS Safety Report 21382495 (Version 2)
Quarter: 2023Q2

REPORT INFORMATION
  Report Type: Other
  Country: US (occurrence: None)
  Receive Date: 20220927
  Receipt Date: 20230502
  Transmission Date: 20230721
  Serious: Yes (Hospitalization)
  Sender: FDA-Public Use
  Company Number: US-ROCHE-3183284

PATIENT
  Age: 75 Year
  Sex: Male
  Weight: 81.720 kg

DRUGS (12)
  1. OCREVUS [Suspect]
     Active Substance: OCRELIZUMAB
     Indication: Relapsing-remitting multiple sclerosis
     Route: 042
     Dates: start: 20190405
  2. AMANTADINE [Concomitant]
     Active Substance: AMANTADINE
  3. DILTIAZEM [Concomitant]
     Active Substance: DILTIAZEM
  4. ELIQUIS [Concomitant]
     Active Substance: APIXABAN
  5. AMPYRA [Concomitant]
     Active Substance: DALFAMPRIDINE
  6. LOSARTAN [Concomitant]
     Active Substance: LOSARTAN
  7. FINASTERIDE [Concomitant]
     Active Substance: FINASTERIDE
  8. BISACODYL [Concomitant]
     Active Substance: BISACODYL
  9. ROSUVASTATIN [Concomitant]
     Active Substance: ROSUVASTATIN
  10. POTASSIUM GLUCONATE [Concomitant]
     Active Substance: POTASSIUM GLUCONATE
  11. TAMSULOSIN [Concomitant]
     Active Substance: TAMSULOSIN
  12. FLONASE [Concomitant]
     Active Substance: FLUTICASONE PROPIONATE

REACTIONS (7)
  - Muscular weakness [Recovered/Resolved]
  - COVID-19 [Recovered/Resolved]
  - Fall [Unknown]
  - Bronchitis [Recovered/Resolved]
  - Muscle spasms [Not Recovered/Not Resolved]
  - Brain fog [Not Recovered/Not Resolved]
  - Pruritus [Recovered/Resolved]

NARRATIVE: CASE EVENT DATE: 20201014
